FAERS Safety Report 15499627 (Version 2)
Quarter: 2018Q4

REPORT INFORMATION
  Report Type: Report from Study
  Country: IL (occurrence: IL)
  Receive Date: 20181015
  Receipt Date: 20181203
  Transmission Date: 20190205
  Serious: Yes (Hospitalization)
  Sender: FDA-Public Use
  Company Number: PHHY2018IL124211

PATIENT
  Sex: Female

DRUGS (1)
  1. COSENTYX [Suspect]
     Active Substance: SECUKINUMAB
     Indication: PSORIASIS
     Dosage: 300 MG, QMO
     Route: 058
     Dates: start: 20180704

REACTIONS (5)
  - Drug ineffective [Not Recovered/Not Resolved]
  - Swelling [Recovered/Resolved]
  - Psoriasis [Unknown]
  - Pyrexia [Recovered/Resolved]
  - Erythema [Recovered/Resolved]
